FAERS Safety Report 7374857-9 (Version None)
Quarter: 2011Q1

REPORT INFORMATION
  Report Type: 
  Country: None (occurrence: None)
  Receive Date: 20110325
  Receipt Date: 20110317
  Transmission Date: 20110831
  Serious: Yes (Other)
  Sender: FDA-Public Use
  Company Number: US-JNJFOC-20110308562

PATIENT
  Sex: Female
  Weight: 79.38 kg

DRUGS (6)
  1. TRAZODONE [Concomitant]
     Indication: MUSCLE SPASMS
     Route: 048
  2. TOPAMAX [Suspect]
     Indication: GRAND MAL CONVULSION
     Route: 048
  3. TOPAMAX [Suspect]
     Route: 048
  4. TOPIRAMATE [Suspect]
     Indication: GRAND MAL CONVULSION
     Route: 048
  5. BACLOFEN [Concomitant]
     Indication: MUSCLE SPASMS
     Route: 048
  6. TOPIRAMATE [Suspect]
     Route: 048

REACTIONS (7)
  - WEIGHT INCREASED [None]
  - MALAISE [None]
  - PRODUCT QUALITY ISSUE [None]
  - JOINT SWELLING [None]
  - RESTLESS LEGS SYNDROME [None]
  - BLOOD PRESSURE ABNORMAL [None]
  - THERAPEUTIC RESPONSE UNEXPECTED [None]
